FAERS Safety Report 12524515 (Version 2)
Quarter: 2017Q3

REPORT INFORMATION
  Report Type: Report from Study
  Country: US (occurrence: US)
  Receive Date: 20160704
  Receipt Date: 20170710
  Transmission Date: 20171127
  Serious: Yes (Hospitalization, Other)
  Sender: FDA-Public Use
  Company Number: US-JNJFOC-20160329183

PATIENT
  Sex: Male

DRUGS (11)
  1. FOLIC ACID. [Concomitant]
     Active Substance: FOLIC ACID
  2. VICODIN [Concomitant]
     Active Substance: ACETAMINOPHEN\HYDROCODONE BITARTRATE
  3. MULTIVITAMINS [Concomitant]
     Active Substance: VITAMINS
  4. ATIVAN [Concomitant]
     Active Substance: LORAZEPAM
  5. IMBRUVICA [Suspect]
     Active Substance: IBRUTINIB
     Indication: CHRONIC LYMPHOCYTIC LEUKAEMIA
     Route: 048
     Dates: start: 20170609
  6. BACTRIM [Concomitant]
     Active Substance: SULFAMETHOXAZOLE\TRIMETHOPRIM
  7. NIFEDICAL XL [Concomitant]
     Active Substance: NIFEDIPINE
  8. IMBRUVICA [Suspect]
     Active Substance: IBRUTINIB
     Indication: CHRONIC LYMPHOCYTIC LEUKAEMIA
     Route: 048
     Dates: start: 20160316
  9. THIAMINE. [Concomitant]
     Active Substance: THIAMINE
  10. ACYCLOVIR. [Concomitant]
     Active Substance: ACYCLOVIR
  11. GABAPENTIN. [Concomitant]
     Active Substance: GABAPENTIN

REACTIONS (10)
  - Acute respiratory failure [Unknown]
  - Decreased appetite [Unknown]
  - Leukocytosis [Unknown]
  - Sinusitis [Unknown]
  - Myalgia [Not Recovered/Not Resolved]
  - Pneumonia [Recovered/Resolved]
  - Pleural effusion [Unknown]
  - Blood sodium decreased [Recovered/Resolved]
  - Asthenia [Not Recovered/Not Resolved]
  - Fatigue [Unknown]

NARRATIVE: CASE EVENT DATE: 2016
